FAERS Safety Report 11870048 (Version 1)
Quarter: 2015Q4

REPORT INFORMATION
  Report Type: Spontaneous
  Country: CA (occurrence: CA)
  Receive Date: 20151228
  Receipt Date: 20151228
  Transmission Date: 20160305
  Serious: Yes (Hospitalization)
  Sender: FDA-Public Use
  Company Number: CA-TEVA-621117ACC

PATIENT
  Age: 15 Year
  Sex: Female
  Weight: 56 kg

DRUGS (31)
  1. CEFTAZIDIME FOR INJECTION, USP [Concomitant]
     Route: 030
  2. CHOLECALCIFEROL [Concomitant]
     Active Substance: CHOLECALCIFEROL
  3. DIMENHYDRINATE. [Concomitant]
     Active Substance: DIMENHYDRINATE
  4. DOCUSATE NOS [Concomitant]
  5. DOXORUBICIN HYDROCHLORIDE INJECTION [Concomitant]
     Active Substance: DOXORUBICIN HYDROCHLORIDE
  6. MINERAL OIL. [Concomitant]
     Active Substance: MINERAL OIL
  7. NEUPOGEN [Concomitant]
     Active Substance: FILGRASTIM
     Route: 042
  8. ONDANSETRON [Concomitant]
     Active Substance: ONDANSETRON
  9. DIPHENHYDRAMINE. [Concomitant]
     Active Substance: DIPHENHYDRAMINE
  10. LANSOPRAZOLE. [Concomitant]
     Active Substance: LANSOPRAZOLE
  11. CISPLATIN INJECTION [Concomitant]
     Active Substance: CISPLATIN
     Route: 042
  12. EMEND [Concomitant]
     Active Substance: APREPITANT
  13. LEUCOVORIN. [Concomitant]
     Active Substance: LEUCOVORIN
  14. PEG 3350 [Concomitant]
     Active Substance: POLYETHYLENE GLYCOL 3350
  15. PENTAMIDINE ISETHIONATE [Concomitant]
     Active Substance: PENTAMIDINE ISETHIONATE
  16. VANCOMYCIN [Concomitant]
     Active Substance: VANCOMYCIN
  17. ACETAMINOPHEN. [Concomitant]
     Active Substance: ACETAMINOPHEN
  18. GENTAMICIN. [Concomitant]
     Active Substance: GENTAMICIN
  19. LORAZEPAM. [Concomitant]
     Active Substance: LORAZEPAM
  20. METOCLOPRAMIDE. [Concomitant]
     Active Substance: METOCLOPRAMIDE
  21. PIPERACILLIN/TAZOBACTAM [Concomitant]
     Active Substance: PIPERACILLIN SODIUM\TAZOBACTAM SODIUM
  22. RANITIDINE [Concomitant]
     Active Substance: RANITIDINE\RANITIDINE HYDROCHLORIDE
  23. TRIMETHOPRIM-SULFAMETHOXAZOLE [Concomitant]
     Active Substance: SULFAMETHOXAZOLE\TRIMETHOPRIM
  24. HYDROMORPHONE [Concomitant]
     Active Substance: HYDROMORPHONE
  25. MORPHINE [Concomitant]
     Active Substance: MORPHINE
  26. DEXAMETHASONE. [Concomitant]
     Active Substance: DEXAMETHASONE
  27. FUROSEMIDE. [Concomitant]
     Active Substance: FUROSEMIDE
  28. METHOTREXATE INJECTION, USP [Suspect]
     Active Substance: METHOTREXATE
     Indication: OSTEOSARCOMA
     Route: 042
  29. ACETYLCYSTEINE SOLUTION [Concomitant]
  30. MAGNESIUM [Concomitant]
     Active Substance: MAGNESIUM
  31. ZINECARD [Concomitant]
     Active Substance: DEXRAZOXANE HYDROCHLORIDE
     Route: 042

REACTIONS (3)
  - Drug level increased [Recovered/Resolved]
  - Drug clearance decreased [Recovered/Resolved]
  - Tubulointerstitial nephritis [Recovered/Resolved]
